FAERS Safety Report 8164375-2 (Version None)
Quarter: 2012Q1

REPORT INFORMATION
  Report Type: 
  Country: None (occurrence: None)
  Receive Date: 20120224
  Receipt Date: 20120216
  Transmission Date: 20120608
  Serious: Yes (Hospitalization, Other)
  Sender: FDA-Public Use
  Company Number: PHHY2012GB013463

PATIENT
  Age: 87 Year
  Sex: Male

DRUGS (1)
  1. METFORMIN HCL [Suspect]
     Dosage: 500 MG, UNK
     Route: 048

REACTIONS (6)
  - FALL [None]
  - VOMITING [None]
  - DYSPHAGIA [None]
  - UNDERDOSE [None]
  - CEREBROVASCULAR ACCIDENT [None]
  - HIP FRACTURE [None]
